FAERS Safety Report 8282488-1 (Version None)
Quarter: 2012Q2

REPORT INFORMATION
  Report Type: 
  Country: None (occurrence: None)
  Receive Date: 20120413
  Receipt Date: 20120409
  Transmission Date: 20120825
  Serious: Yes (Hospitalization)
  Sender: FDA-Public Use
  Company Number: US-ABBOTT-12P-163-0920253-00

PATIENT
  Sex: Male
  Weight: 99.426 kg

DRUGS (13)
  1. IRON [Concomitant]
     Indication: MINERAL SUPPLEMENTATION
  2. VITAMIN B-12 [Concomitant]
     Indication: PRODUCT USED FOR UNKNOWN INDICATION
  3. ATIVAN [Concomitant]
     Indication: ANGER
  4. HUMIRA [Suspect]
     Indication: CROHN'S DISEASE
     Dates: start: 20110401, end: 20111101
  5. KLONOPIN [Concomitant]
     Indication: DEPRESSION
  6. DESIPRAMINE HYDROCHLORIDE [Concomitant]
     Indication: PAIN
  7. MULTIPLE VITAMINS [Concomitant]
     Indication: VITAMIN SUPPLEMENTATION
  8. PREDNISONE [Concomitant]
     Indication: CROHN'S DISEASE
     Dosage: 1 IN 1 DAY, INTENDED TO TAPER DRUG
  9. ATIVAN [Concomitant]
     Indication: ANXIETY
  10. HUMIRA [Suspect]
     Dates: start: 20111101
  11. VITAMIN D [Concomitant]
     Indication: VITAMIN SUPPLEMENTATION
  12. CELEXA [Concomitant]
     Indication: DEPRESSION
  13. KLONOPIN [Concomitant]
     Indication: PAIN

REACTIONS (18)
  - ABDOMINAL PAIN [None]
  - RED BLOOD CELL SEDIMENTATION RATE INCREASED [None]
  - DIARRHOEA [None]
  - INTESTINAL MUCOSAL HYPERTROPHY [None]
  - HAEMOGLOBIN DECREASED [None]
  - FREQUENT BOWEL MOVEMENTS [None]
  - GASTROINTESTINAL INFLAMMATION [None]
  - CROHN'S DISEASE [None]
  - INTESTINAL PERFORATION [None]
  - IMPAIRED HEALING [None]
  - PERSONALITY CHANGE [None]
  - ABDOMINAL DISTENSION [None]
  - C-REACTIVE PROTEIN INCREASED [None]
  - STOMATITIS [None]
  - WEIGHT DECREASED [None]
  - DRUG INEFFECTIVE [None]
  - FATIGUE [None]
  - PYREXIA [None]
